FAERS Safety Report 4353846-2 (Version None)
Quarter: 2004Q2

REPORT INFORMATION
  Report Type: 
  Country: None (occurrence: None)
  Receive Date: 20040503
  Receipt Date: 20040421
  Transmission Date: 20050107
  Serious: Yes (Life-Threatening, Hospitalization)
  Sender: FDA-Public Use
  Company Number: JP-JNJFOC-20040202719

PATIENT
  Age: 71 Year
  Sex: Female
  Weight: 52 kg

DRUGS (16)
  1. REMICADE [Suspect]
     Indication: RHEUMATOID ARTHRITIS
     Dosage: SEE IMAGE
     Route: 048
     Dates: start: 20030614, end: 20030614
  2. REMICADE [Suspect]
     Indication: RHEUMATOID ARTHRITIS
     Dosage: SEE IMAGE
     Route: 048
     Dates: start: 20030712, end: 20030712
  3. REMICADE [Suspect]
     Indication: RHEUMATOID ARTHRITIS
     Dosage: SEE IMAGE
     Route: 048
     Dates: start: 20030822, end: 20030822
  4. REMICADE [Suspect]
     Indication: RHEUMATOID ARTHRITIS
     Dosage: SEE IMAGE
     Route: 048
     Dates: start: 20030905, end: 20030905
  5. REMICADE [Suspect]
     Indication: RHEUMATOID ARTHRITIS
     Dosage: SEE IMAGE
     Route: 048
     Dates: start: 20031003, end: 20031003
  6. REMICADE [Suspect]
     Indication: RHEUMATOID ARTHRITIS
     Dosage: SEE IMAGE
     Route: 048
     Dates: start: 20031118, end: 20031118
  7. RHEUMATREX [Suspect]
     Dosage: SEE IMAGE
     Route: 048
     Dates: start: 20010710, end: 20011210
  8. RHEUMATREX [Suspect]
     Dosage: SEE IMAGE
     Route: 048
     Dates: start: 20011211, end: 20020114
  9. RHEUMATREX [Suspect]
     Dosage: SEE IMAGE
     Route: 048
     Dates: start: 20030820, end: 20031207
  10. ARAVA [Suspect]
     Indication: RHEUMATOID ARTHRITIS
     Dosage: SEE IMAGE
     Route: 048
     Dates: start: 20031208, end: 20031210
  11. ARAVA [Suspect]
     Indication: RHEUMATOID ARTHRITIS
     Dosage: SEE IMAGE
     Route: 048
     Dates: start: 20031211, end: 20040119
  12. PREDNISOLONE [Suspect]
     Indication: RHEUMATOID ARTHRITIS
     Dosage: 10 MG, IN 1 DAY, ORAL
     Route: 048
     Dates: start: 20030822
  13. LOXONIN (LOXOPROFEN SODIUM) UNKNOWN [Concomitant]
  14. TAKEPRON (LANSOPRAZOLE) UNKNOWN [Concomitant]
  15. BENET (ALL OTHER THERAPEUTIC PRDOUCTS ) UNKNONW [Concomitant]
  16. LENDORMIN (BROTIZOLAM) UNKNOWN [Concomitant]

REACTIONS (5)
  - COLON CANCER RECURRENT [None]
  - DRUG EFFECT DECREASED [None]
  - DRUG INTERACTION [None]
  - HYDRONEPHROSIS [None]
  - RETROPERITONEAL ABSCESS [None]
